FAERS Safety Report 23965582 (Version 2)
Quarter: 2024Q3

REPORT INFORMATION
  Report Type: Spontaneous
  Country: US (occurrence: US)
  Receive Date: 20240612
  Receipt Date: 20240807
  Transmission Date: 20241016
  Serious: Yes (Hospitalization, Other)
  Sender: LEO PHARM
  Company Number: US-LEO Pharma-371015

PATIENT
  Age: 86 Year
  Sex: Female
  Weight: 54 kg

DRUGS (12)
  1. ADBRY [Suspect]
     Active Substance: TRALOKINUMAB-LDRM
     Indication: Eczema nummular
     Dosage: 4 SYRINGES (600 MG) FOR THE INITIAL DOSE ON DAY 1
     Route: 058
     Dates: start: 20240529
  2. ADBRY [Suspect]
     Active Substance: TRALOKINUMAB-LDRM
     Indication: Pruritus
     Dosage: 4 SYRINGES (600 MG) FOR THE INITIAL DOSE ON DAY 1
     Route: 058
     Dates: start: 20240529
  3. ADBRY [Suspect]
     Active Substance: TRALOKINUMAB-LDRM
     Indication: Dermatitis atopic
     Dosage: 4 SYRINGES (600 MG) FOR THE INITIAL DOSE ON DAY 1
     Route: 058
     Dates: start: 20240529
  4. ADBRY [Suspect]
     Active Substance: TRALOKINUMAB-LDRM
     Indication: Asthma
     Dosage: 4 SYRINGES (600 MG) FOR THE INITIAL DOSE ON DAY 1
     Route: 058
     Dates: start: 20240529
  5. ADBRY [Suspect]
     Active Substance: TRALOKINUMAB-LDRM
     Indication: Asthma
     Dosage: 4 SYRINGES (600 MG) FOR THE INITIAL DOSE ON DAY 1
     Route: 058
     Dates: start: 20240529
  6. ADBRY [Suspect]
     Active Substance: TRALOKINUMAB-LDRM
     Indication: Dermatitis contact
     Dosage: 4 SYRINGES (600 MG) FOR THE INITIAL DOSE ON DAY 1
     Route: 058
     Dates: start: 20240529
  7. ADBRY [Suspect]
     Active Substance: TRALOKINUMAB-LDRM
     Indication: Eczema
     Dosage: 4 SYRINGES (600 MG) FOR THE INITIAL DOSE ON DAY 1
     Route: 058
     Dates: start: 20240529
  8. ATORVASTATIN [Concomitant]
     Active Substance: ATORVASTATIN
     Indication: Product used for unknown indication
  9. NIFEDIPINE [Concomitant]
     Active Substance: NIFEDIPINE
     Indication: Product used for unknown indication
  10. LOSARTAN [Concomitant]
     Active Substance: LOSARTAN
     Indication: Product used for unknown indication
  11. ELIQUIS [Concomitant]
     Active Substance: APIXABAN
     Indication: Product used for unknown indication
  12. SERTRALINE [Concomitant]
     Active Substance: SERTRALINE HYDROCHLORIDE
     Indication: Product used for unknown indication

REACTIONS (3)
  - Hypertension [Recovering/Resolving]
  - Product use in unapproved indication [Unknown]
  - Atrial fibrillation [Unknown]

NARRATIVE: CASE EVENT DATE: 20240529
